FAERS Safety Report 14390737 (Version 1)
Quarter: 2018Q1

REPORT INFORMATION
  Report Type: Spontaneous
  Country: FR (occurrence: FR)
  Receive Date: 20180116
  Receipt Date: 20180116
  Transmission Date: 20180509
  Serious: Yes (Other)
  Sender: FDA-Public Use
  Company Number: FR-MERCK KGAA-2040071

PATIENT
  Age: 49 Year
  Sex: Female
  Weight: 54 kg

DRUGS (2)
  1. NOVOTHYROX [Suspect]
     Active Substance: LEVOTHYROXINE SODIUM
     Indication: HYPOTHYROIDISM
     Route: 048
     Dates: start: 20170722
  2. LEVOTHYROX 25 [Suspect]
     Active Substance: LEVOTHYROXINE SODIUM
     Route: 048
     Dates: start: 20170722

REACTIONS (7)
  - Nausea [Not Recovered/Not Resolved]
  - Myalgia [Not Recovered/Not Resolved]
  - Blood thyroid stimulating hormone decreased [Not Recovered/Not Resolved]
  - Fatigue [Not Recovered/Not Resolved]
  - Vertigo [Not Recovered/Not Resolved]
  - Diffuse alopecia [Not Recovered/Not Resolved]
  - Dyspnoea [Not Recovered/Not Resolved]

NARRATIVE: CASE EVENT DATE: 20170808
